FAERS Safety Report 5337459-1 (Version None)
Quarter: 2007Q2

REPORT INFORMATION
  Report Type: 
  Country: None (occurrence: None)
  Receive Date: 20070524
  Receipt Date: 20070508
  Transmission Date: 20071010
  Serious: Yes (Life-Threatening, Hospitalization)
  Sender: FDA-Public Use
  Company Number: VNL_0529_2007

PATIENT
  Sex: Male

DRUGS (2)
  1. APOMORPHINE HYDROCHLORIDE (APOMORPHINE HYDROCHLORIDE) [Suspect]
     Indication: PARKINSON'S DISEASE
     Dosage: (5 MG PER HOUR SUBCUTANEOUS)
     Route: 058
     Dates: start: 20060626
  2. SINEMET [Suspect]
     Indication: PARKINSON'S DISEASE
     Dosage: (25/100 MG BID ORAL)
     Route: 048
     Dates: start: 19980701

REACTIONS (3)
  - GENERAL PHYSICAL HEALTH DETERIORATION [None]
  - HAEMOLYTIC ANAEMIA [None]
  - PNEUMONIA ASPIRATION [None]
